FAERS Safety Report 22126266 (Version 2)
Quarter: 2023Q2

REPORT INFORMATION
  Report Type: Spontaneous
  Country: US (occurrence: US)
  Receive Date: 20230322
  Receipt Date: 20230621
  Transmission Date: 20230721
  Serious: No
  Sender: FDA-Public Use
  Company Number: US-SA-SAC20230321000549

PATIENT
  Age: 13 Year
  Sex: Female

DRUGS (16)
  1. DUPIXENT [Suspect]
     Active Substance: DUPILUMAB
     Indication: Asthma
     Dosage: 300 MG, QOW
     Route: 058
     Dates: start: 20230221
  2. AZITHROMYCIN [Concomitant]
     Active Substance: AZITHROMYCIN
     Dosage: UNK
     Route: 065
  3. DULCOLAX (BISACODYL) [Concomitant]
     Active Substance: BISACODYL
     Dosage: UNK
     Route: 065
  4. FLONASE [Concomitant]
     Active Substance: FLUTICASONE PROPIONATE
     Dosage: UNK
     Route: 065
  5. FLOVENT HFA [Concomitant]
     Active Substance: FLUTICASONE PROPIONATE
     Dosage: UNK
     Route: 065
  6. HYDROCORTISONE [Concomitant]
     Active Substance: HYDROCORTISONE
     Dosage: UNK
     Route: 065
  7. IPRATROPIUM [Concomitant]
     Active Substance: IPRATROPIUM
     Dosage: UNK
     Route: 065
  8. METRONIDAZOLE [Concomitant]
     Active Substance: METRONIDAZOLE
     Dosage: UNK
     Route: 065
  9. MIRALAX [Concomitant]
     Active Substance: POLYETHYLENE GLYCOL 3350
     Dosage: UNK
     Route: 065
  10. MONTELUKAST [Concomitant]
     Active Substance: MONTELUKAST SODIUM
     Dosage: UNK
     Route: 065
  11. NEXIUM I.V. [Concomitant]
     Active Substance: ESOMEPRAZOLE SODIUM
     Dosage: UNK
     Route: 065
  12. NORDITROPIN [Concomitant]
     Active Substance: SOMATROPIN
     Dosage: UNK
     Route: 065
  13. PATANASE [Concomitant]
     Active Substance: OLOPATADINE HYDROCHLORIDE
     Dosage: UNK
     Route: 065
  14. SODIUM CHLORIDE [Concomitant]
     Active Substance: SODIUM CHLORIDE
     Dosage: UNK
     Route: 065
  15. TRETINOIN [Concomitant]
     Active Substance: TRETINOIN
     Dosage: UNK
     Route: 065
  16. NEXIUM [Concomitant]
     Active Substance: ESOMEPRAZOLE MAGNESIUM
     Dosage: UNK
     Route: 065

REACTIONS (7)
  - Sleep disorder [Recovered/Resolved]
  - Foot fracture [Not Recovered/Not Resolved]
  - Impaired quality of life [Recovered/Resolved]
  - Impaired quality of life [Not Recovered/Not Resolved]
  - Nasopharyngitis [Not Recovered/Not Resolved]
  - Asthma [Recovered/Resolved]
  - Asthma [Recovering/Resolving]

NARRATIVE: CASE EVENT DATE: 20230101
